FAERS Safety Report 7080084-5 (Version None)
Quarter: 2010Q4

REPORT INFORMATION
  Report Type: 
  Country: None (occurrence: None)
  Receive Date: 20101102
  Receipt Date: 20101019
  Transmission Date: 20110411
  Serious: Yes (Death, Hospitalization)
  Sender: FDA-Public Use
  Company Number: US-AMGEN-US354288

PATIENT

DRUGS (5)
  1. NPLATE [Suspect]
     Indication: IDIOPATHIC THROMBOCYTOPENIC PURPURA
     Dosage: 3 A?G/KG, UNK
     Dates: end: 20090622
  2. NPLATE [Suspect]
  3. IMMU-G [Concomitant]
  4. INSULIN [Concomitant]
  5. AZTREONAM [Concomitant]

REACTIONS (4)
  - CHRONIC LYMPHOCYTIC LEUKAEMIA [None]
  - IDIOPATHIC THROMBOCYTOPENIC PURPURA [None]
  - PNEUMONIA [None]
  - SEPSIS [None]
